FAERS Safety Report 5626920-8 (Version None)
Quarter: 2008Q1

REPORT INFORMATION
  Report Type: 
  Country: None (occurrence: None)
  Receive Date: 20080212
  Receipt Date: 20080130
  Transmission Date: 20080703
  Serious: No
  Sender: FDA-Public Use
  Company Number: 230788J08USA

PATIENT
  Age: 43 Year
  Sex: Female

DRUGS (12)
  1. REBIF [Suspect]
     Indication: MULTIPLE SCLEROSIS
     Dosage: 44 MCG, 3 IN 1 WEEKS, SUBCUTANEOUS
     Route: 058
     Dates: start: 20071112
  2. BACLOFEN [Concomitant]
  3. LYRICA [Concomitant]
  4. METHADONE HCL [Concomitant]
  5. DILAUDID [Concomitant]
  6. CYMBALTA [Concomitant]
  7. TOPROL-XL [Concomitant]
  8. DESIPRAMINE (DEIPRAMINE) [Concomitant]
  9. PROTONIX [Concomitant]
  10. AMITIZA (ALL OTHER THERAPEUTIC PRODUCTS) [Concomitant]
  11. TRAZODONE HCL [Concomitant]
  12. RESTORIL [Concomitant]

REACTIONS (9)
  - CONDITION AGGRAVATED [None]
  - CONFUSIONAL STATE [None]
  - DEPRESSION [None]
  - DYSKINESIA [None]
  - FALL [None]
  - FATIGUE [None]
  - HEAD BANGING [None]
  - SOMNOLENCE [None]
  - TREMOR [None]
